FAERS Safety Report 19213209 (Version 3)
Quarter: 2021Q3

REPORT INFORMATION
  Report Type: Report from Study
  Country: AR (occurrence: AR)
  Receive Date: 20210504
  Receipt Date: 20210714
  Transmission Date: 20211014
  Serious: Yes (Other)
  Sender: FDA-Public Use
  Company Number: AR-SEATTLE GENETICS-2021SGN02423

PATIENT
  Age: 36 Year
  Sex: Male

DRUGS (2)
  1. BRENTUXIMAB VEDOTIN [Suspect]
     Active Substance: BRENTUXIMAB VEDOTIN
     Indication: HODGKIN^S DISEASE
     Dosage: 1.8 MILLIGRAM/KILOGRAM, Q3WEEKS
     Route: 042
     Dates: start: 202003
  2. BENDAMUSTINE [Suspect]
     Active Substance: BENDAMUSTINE
     Indication: HODGKIN^S DISEASE
     Dosage: UNK
     Route: 065

REACTIONS (11)
  - Bone marrow disorder [Unknown]
  - SARS-CoV-2 test positive [Recovering/Resolving]
  - Night sweats [Unknown]
  - Nasopharyngitis [Recovering/Resolving]
  - Abdominal lymphadenopathy [Unknown]
  - Chest pain [Unknown]
  - Mediastinal mass [Unknown]
  - Cough [Unknown]
  - Anaemia [Unknown]
  - Dyspnoea [Unknown]
  - Adverse event [Unknown]

NARRATIVE: CASE EVENT DATE: 202003
